FAERS Safety Report 7960811-2 (Version None)
Quarter: 2011Q4

REPORT INFORMATION
  Report Type: 
  Country: None (occurrence: None)
  Receive Date: 20111207
  Receipt Date: 20111201
  Transmission Date: 20120403
  Serious: Yes (Hospitalization)
  Sender: FDA-Public Use
  Company Number: US-BIOGENIDEC-2011BI040399

PATIENT
  Sex: Female

DRUGS (4)
  1. COPAXONE [Concomitant]
     Indication: MULTIPLE SCLEROSIS
     Dates: start: 19880101
  2. FOSAMAX [Concomitant]
     Indication: OSTEOPOROSIS
  3. AVONEX [Suspect]
     Route: 030
     Dates: start: 20111018
  4. AVONEX [Suspect]
     Indication: MULTIPLE SCLEROSIS
     Route: 030
     Dates: start: 19961024

REACTIONS (1)
  - NO ADVERSE EVENT [None]
